FAERS Safety Report 24172716 (Version 1)
Quarter: 2024Q3

REPORT INFORMATION
  Report Type: Spontaneous
  Country: PL (occurrence: PL)
  Receive Date: 20240805
  Receipt Date: 20240805
  Transmission Date: 20241017
  Serious: Yes (Life-Threatening, Other)
  Sender: GLAXOSMITHKLINE
  Company Number: None

PATIENT

DRUGS (3)
  1. LAMOTRIGINE [Suspect]
     Active Substance: LAMOTRIGINE
     Indication: Product used for unknown indication
     Dosage: 20 DF
     Route: 048
     Dates: start: 20200721
  2. SERTRALINE [Suspect]
     Active Substance: SERTRALINE HYDROCHLORIDE
     Indication: Product used for unknown indication
     Dosage: 10 DF
     Route: 048
     Dates: start: 20200721
  3. DULOXETINE [Suspect]
     Active Substance: DULOXETINE
     Indication: Product used for unknown indication
     Dosage: 14 DF
     Route: 048
     Dates: start: 20200721

REACTIONS (5)
  - Depressed mood [Recovered/Resolved]
  - Balance disorder [Recovered/Resolved]
  - Suicide attempt [Recovered/Resolved]
  - Somnolence [Recovered/Resolved]
  - Drug abuse [Unknown]

NARRATIVE: CASE EVENT DATE: 20200721
